FAERS Safety Report 14260425 (Version 1)
Quarter: 2017Q4

REPORT INFORMATION
  Report Type: Report from Study
  Country: TW (occurrence: TW)
  Receive Date: 20171207
  Receipt Date: 20171207
  Transmission Date: 20180321
  Serious: Yes (Other)
  Sender: FDA-Public Use
  Company Number: TW-ACTELION-A-US2017-163785

PATIENT
  Sex: Male
  Weight: 70.97 kg

DRUGS (7)
  1. AMIZIDE [Concomitant]
  2. POTASSIUM GLUCONATE [Concomitant]
     Active Substance: POTASSIUM GLUCONATE
  3. REVATIO [Concomitant]
     Active Substance: SILDENAFIL CITRATE
  4. FLUNITRAZEPAM [Concomitant]
     Active Substance: FLUNITRAZEPAM
  5. VENTAVIS [Suspect]
     Active Substance: ILOPROST
     Indication: PULMONARY ARTERIAL HYPERTENSION
     Dosage: UNK
     Route: 055
     Dates: start: 20171114
  6. THROUGH [Concomitant]
  7. PARASITOL [Concomitant]
     Active Substance: PYRANTEL PAMOATE

REACTIONS (2)
  - Dyspnoea [Not Recovered/Not Resolved]
  - Pulmonary thrombosis [Recovering/Resolving]

NARRATIVE: CASE EVENT DATE: 20171120
